FAERS Safety Report 6759441-X (Version None)
Quarter: 2010Q2

REPORT INFORMATION
  Report Type: 
  Country: None (occurrence: None)
  Receive Date: 20100603
  Receipt Date: 20100523
  Transmission Date: 20101027
  Serious: Yes (Hospitalization)
  Sender: FDA-Public Use
  Company Number: DSA_43180_2010

PATIENT
  Sex: Female

DRUGS (1)
  1. APLENZIN [Suspect]
     Indication: DEPRESSION
     Dosage: (DF)
     Dates: start: 20090801, end: 20091101

REACTIONS (2)
  - AUTOIMMUNE HEPATITIS [None]
  - LIVER FUNCTION TEST ABNORMAL [None]
